FAERS Safety Report 6801492-0 (Version None)
Quarter: 2010Q2

REPORT INFORMATION
  Report Type: 
  Country: None (occurrence: None)
  Receive Date: 20100629
  Receipt Date: 20100616
  Transmission Date: 20101027
  Serious: Yes (Other)
  Sender: FDA-Public Use
  Company Number: US-ELI_LILLY_AND_COMPANY-US201006002331

PATIENT
  Age: 72 Year
  Sex: Female

DRUGS (2)
  1. FORTEO [Suspect]
     Dates: end: 20100524
  2. FORTEO [Suspect]
     Dates: start: 20100615

REACTIONS (3)
  - NERVE ROOT INJURY [None]
  - SPINAL FUSION SURGERY [None]
  - THERAPY CESSATION [None]
